FAERS Safety Report 7385728-6 (Version None)
Quarter: 2011Q1

REPORT INFORMATION
  Report Type: 
  Country: None (occurrence: None)
  Receive Date: 20110331
  Receipt Date: 20110204
  Transmission Date: 20110831
  Serious: Yes (Death, Hospitalization, Other)
  Sender: FDA-Public Use
  Company Number: US-BAYER-201018761NA

PATIENT
  Sex: Male

DRUGS (3)
  1. BETASERON [Suspect]
     Indication: DEMENTIA ALZHEIMER'S TYPE
     Dosage: BETAJECT
     Route: 058
     Dates: start: 20090605, end: 20100321
  2. BETASERON [Suspect]
     Dosage: BETAJECT
     Route: 058
     Dates: start: 20101004, end: 20110124
  3. INSULIN [Concomitant]
     Indication: TYPE 1 DIABETES MELLITUS

REACTIONS (6)
  - HEART RATE IRREGULAR [None]
  - MEMORY IMPAIRMENT [None]
  - MULTIPLE SCLEROSIS [None]
  - CONFUSIONAL STATE [None]
  - PANCREATOLITHIASIS [None]
  - DEMENTIA ALZHEIMER'S TYPE [None]
